FAERS Safety Report 11229360 (Version 3)
Quarter: 2015Q4

REPORT INFORMATION
  Report Type: Spontaneous
  Country: US (occurrence: US)
  Receive Date: 20150630
  Receipt Date: 20151029
  Transmission Date: 20160304
  Serious: Yes (Hospitalization, Other)
  Sender: FDA-Public Use
  Company Number: US-GLAXOSMITHKLINE-US2015090331

PATIENT
  Age: 68 Year
  Sex: Male

DRUGS (14)
  1. NASONEX [Concomitant]
     Active Substance: MOMETASONE FUROATE
  2. ADVAIR DISKUS [Suspect]
     Active Substance: FLUTICASONE PROPIONATE\SALMETEROL XINAFOATE
     Dosage: 1 PUFF(S), TID
     Route: 055
  3. AMLODIPINE [Concomitant]
     Active Substance: AMLODIPINE BESYLATE
  4. OMEPRAZOLE. [Concomitant]
     Active Substance: OMEPRAZOLE
  5. VIT B-2 [Concomitant]
  6. ADVAIR DISKUS [Suspect]
     Active Substance: FLUTICASONE PROPIONATE\SALMETEROL XINAFOATE
     Indication: CHRONIC OBSTRUCTIVE PULMONARY DISEASE
     Dosage: 1 PUFF(S), BID
     Route: 055
     Dates: start: 201312
  7. NORTRIPTYLINE [Concomitant]
     Active Substance: NORTRIPTYLINE
  8. TOPAMAX [Concomitant]
     Active Substance: TOPIRAMATE
  9. ADVAIR DISKUS [Suspect]
     Active Substance: FLUTICASONE PROPIONATE\SALMETEROL XINAFOATE
     Dosage: 1 PUFF(S), BID
     Route: 055
  10. OXYBUTIN [Concomitant]
     Active Substance: OXYBUTYNIN
  11. SPIRIVA [Concomitant]
     Active Substance: TIOTROPIUM BROMIDE MONOHYDRATE
  12. ALBUTEROL INHALER [Concomitant]
     Active Substance: ALBUTEROL
  13. ATORVASTATIN [Concomitant]
     Active Substance: ATORVASTATIN
  14. METOPROLOL [Concomitant]
     Active Substance: METOPROLOL

REACTIONS (7)
  - Pneumonia [Recovered/Resolved]
  - Dry mouth [Unknown]
  - Aphonia [Recovered/Resolved]
  - Headache [Recovering/Resolving]
  - Ill-defined disorder [Not Recovered/Not Resolved]
  - Accidental overdose [Recovered/Resolved]
  - Device use error [Recovered/Resolved]

NARRATIVE: CASE EVENT DATE: 20150420
